FAERS Safety Report 8564170-6 (Version None)
Quarter: 2012Q3

REPORT INFORMATION
  Report Type: 
  Country: None (occurrence: None)
  Receive Date: 20120723
  Receipt Date: 20120712
  Transmission Date: 20120928
  Serious: Yes (Other)
  Sender: FDA-Public Use
  Company Number: AUR-APL-2012-03080

PATIENT
  Age: 32 Year

DRUGS (4)
  1. VENLAFAXINE HCL [Suspect]
     Indication: MAJOR DEPRESSION
     Dosage: 150 MG/DAY
  2. LAMIVUDINE [Concomitant]
  3. ZIDOVUDINE [Concomitant]
  4. INDINIVIR SULFATE [Suspect]
     Indication: HIV INFECTION

REACTIONS (3)
  - BLOOD HIV RNA INCREASED [None]
  - LETHARGY [None]
  - VIROLOGIC FAILURE [None]
